FAERS Safety Report 20690184 (Version 1)
Quarter: 2022Q2

REPORT INFORMATION
  Report Type: Spontaneous
  Country: ES (occurrence: ES)
  Receive Date: 20220408
  Receipt Date: 20220408
  Transmission Date: 20220721
  Serious: Yes (Other)
  Sender: FDA-Public Use
  Company Number: ES-PFIZER INC-202200498202

PATIENT
  Sex: Male

DRUGS (4)
  1. AVIBACTAM SODIUM\CEFTAZIDIME [Suspect]
     Active Substance: AVIBACTAM SODIUM\CEFTAZIDIME
     Indication: Pancreatitis necrotising
     Dosage: 2 G, TID
  2. AVIBACTAM SODIUM\CEFTAZIDIME [Suspect]
     Active Substance: AVIBACTAM SODIUM\CEFTAZIDIME
     Indication: Klebsiella infection
  3. METRONIDAZOLE [Suspect]
     Active Substance: METRONIDAZOLE
     Indication: Pancreatitis necrotising
     Dosage: 500 MG, TID
  4. METRONIDAZOLE [Suspect]
     Active Substance: METRONIDAZOLE
     Indication: Klebsiella infection

REACTIONS (8)
  - Gastrointestinal haemorrhage [Unknown]
  - Large intestine perforation [Unknown]
  - Pathogen resistance [Unknown]
  - Effusion [Unknown]
  - Pyrexia [Unknown]
  - Cellulite [Unknown]
  - Purulent discharge [Unknown]
  - Acute phase reaction [Unknown]
